FAERS Safety Report 8389407-8 (Version None)
Quarter: 2012Q2

REPORT INFORMATION
  Report Type: 
  Country: None (occurrence: None)
  Receive Date: 20120528
  Receipt Date: 20120517
  Transmission Date: 20120825
  Serious: Yes (Other)
  Sender: FDA-Public Use
  Company Number: US-SHIRE-ALL1-2012-02621

PATIENT
  Sex: Male

DRUGS (3)
  1. INTUNIV [Suspect]
     Dosage: 1 MG, 1X/DAY:QD
     Route: 048
     Dates: start: 20120315
  2. INTUNIV [Suspect]
     Dosage: 1 MG, 1X/DAY:QD
     Route: 048
     Dates: start: 20120228, end: 20120306
  3. INTUNIV [Suspect]
     Indication: ATTENTION DEFICIT/HYPERACTIVITY DISORDER
     Dosage: 2 MG, 1X/DAY:QD
     Route: 048
     Dates: start: 20120307, end: 20120314

REACTIONS (7)
  - CRYING [None]
  - AGGRESSION [None]
  - SUICIDAL BEHAVIOUR [None]
  - DEPRESSED MOOD [None]
  - THERAPEUTIC RESPONSE UNEXPECTED [None]
  - ANGER [None]
  - LETHARGY [None]
